FAERS Safety Report 8463179-0 (Version None)
Quarter: 2012Q2

REPORT INFORMATION
  Report Type: 
  Country: None (occurrence: None)
  Receive Date: 20120625
  Receipt Date: 20120622
  Transmission Date: 20120825
  Serious: No
  Sender: FDA-Public Use
  Company Number: US-PFIZER INC-2012118347

PATIENT
  Sex: Female
  Weight: 95.692 kg

DRUGS (9)
  1. BUSPAR [Concomitant]
     Dosage: UNK
  2. AGGRENOX [Concomitant]
     Dosage: UNK
  3. LASIX [Concomitant]
     Dosage: UNK
  4. CHANTIX [Suspect]
     Indication: SMOKING CESSATION THERAPY
     Dosage: 0.5 MG, 1X/DAY
     Route: 048
  5. CHANTIX [Suspect]
     Dosage: 0.5 MG, 1X/DAY
     Route: 048
  6. CYMBALTA [Concomitant]
     Dosage: UNK
  7. PAXIL CR [Concomitant]
     Dosage: UNK
  8. CLONAZEPAM [Concomitant]
     Dosage: UNK
  9. CHANTIX [Suspect]
     Dosage: 1 MG, 2X/DAY
     Route: 048

REACTIONS (2)
  - NAUSEA [None]
  - HEADACHE [None]
